FAERS Safety Report 9442496 (Version 1)
Quarter: 2013Q3

REPORT INFORMATION
  Report Type: Spontaneous
  Country: US (occurrence: None)
  Receive Date: 20130805
  Receipt Date: 20130805
  Transmission Date: 20140515
  Serious: Yes (Life-Threatening, Hospitalization, Other)
  Sender: FDA-Public Use
  Company Number: None

PATIENT
  Age: 80 Year
  Sex: Female
  Weight: 74.84 kg

DRUGS (2)
  1. VALPROIC ACID [Suspect]
     Dosage: 2,000MG  DAILY  G TUBE
     Route: 048
     Dates: start: 20130505, end: 20130708
  2. VALPROIC ACID [Suspect]
     Indication: BIPOLAR DISORDER
     Dosage: 2,000MG  DAILY  G TUBE
     Route: 048
     Dates: start: 20130505, end: 20130708

REACTIONS (10)
  - Tremor [None]
  - Altered state of consciousness [None]
  - Stupor [None]
  - Cellulitis [None]
  - Balance disorder [None]
  - Asthenia [None]
  - Eye movement disorder [None]
  - Arthralgia [None]
  - Bedridden [None]
  - Decubitus ulcer [None]
